FAERS Safety Report 4425078-0 (Version None)
Quarter: 2004Q3

REPORT INFORMATION
  Report Type: 
  Country: None (occurrence: None)
  Receive Date: 20040811
  Receipt Date: 20040811
  Transmission Date: 20050211
  Serious: Yes (Disabling)
  Sender: FDA-Public Use
  Company Number: None

PATIENT
  Age: 47 Year
  Sex: Male
  Weight: 79.3795 kg

DRUGS (1)
  1. IMIQUIMOD [Suspect]
     Indication: ACTINIC KERATOSIS
     Dosage: FULL STRENG   3X WEEKLY   CUTANEOUS
     Route: 003
     Dates: start: 20030101, end: 20030330

REACTIONS (3)
  - INFLAMMATION [None]
  - MOVEMENT DISORDER [None]
  - PARKINSON'S DISEASE [None]
